FAERS Safety Report 5380945-9 (Version None)
Quarter: 2007Q3

REPORT INFORMATION
  Report Type: 
  Country: None (occurrence: None)
  Receive Date: 20070706
  Receipt Date: 20070627
  Transmission Date: 20080115
  Serious: Yes (Death)
  Sender: FDA-Public Use
  Company Number: AU-SANOFI-SYNTHELABO-A01200706892

PATIENT
  Age: 32 Year
  Sex: Female

DRUGS (2)
  1. HEROIN [Suspect]
     Indication: DRUG DEPENDENCE
     Dosage: UNK
     Route: 065
  2. ZOLPIDEM TARTRATE [Suspect]
     Indication: DRUG USE FOR UNKNOWN INDICATION
     Dosage: 30 MG
     Route: 048

REACTIONS (3)
  - ABNORMAL BEHAVIOUR [None]
  - DRUG ABUSER [None]
  - ROAD TRAFFIC ACCIDENT [None]
